FAERS Safety Report 9397618 (Version 1)
Quarter: 2013Q3

REPORT INFORMATION
  Report Type: Spontaneous
  Country: US (occurrence: None)
  Receive Date: 20130711
  Receipt Date: 20130711
  Transmission Date: 20140515
  Serious: No
  Sender: FDA-Public Use
  Company Number: None

PATIENT
  Age: 71 Year
  Sex: Female

DRUGS (2)
  1. POMALIDOMIDE [Suspect]
     Indication: PLASMA CELL MYELOMA
     Dosage: 4 MG CHANGED TO 1 MG
  2. VELCADE [Suspect]
     Indication: PLASMA CELL MYELOMA

REACTIONS (2)
  - Injection site erythema [None]
  - Injection site swelling [None]
